FAERS Safety Report 7466182-2 (Version None)
Quarter: 2011Q2

REPORT INFORMATION
  Report Type: 
  Country: None (occurrence: None)
  Receive Date: 20110509
  Receipt Date: 20110425
  Transmission Date: 20111010
  Serious: Yes (Hospitalization)
  Sender: FDA-Public Use
  Company Number: IN-ELI_LILLY_AND_COMPANY-IN201104008074

PATIENT
  Age: 19 Year
  Sex: Male

DRUGS (7)
  1. FLUOXETINE HYDROCHLORIDE [Suspect]
     Dosage: 60 MG, QD
  2. FLUOXETINE HYDROCHLORIDE [Suspect]
     Dosage: 20 MG, QD
  3. HALOPERIDOL [Concomitant]
     Dosage: 10 MG, QD
  4. HALOPERIDOL [Concomitant]
     Dosage: 10 MG, QD
  5. LITHIUM [Concomitant]
  6. FLUOXETINE HYDROCHLORIDE [Suspect]
     Dosage: 20 MG, QD
  7. FLUOXETINE HYDROCHLORIDE [Suspect]
     Dosage: 40 MG, QD

REACTIONS (6)
  - MANIA [None]
  - OBSESSIVE-COMPULSIVE DISORDER [None]
  - HYPOMANIA [None]
  - TREATMENT NONCOMPLIANCE [None]
  - DRUG INTERACTION [None]
  - EXTRAPYRAMIDAL DISORDER [None]
